FAERS Safety Report 9786351 (Version 3)
Quarter: 2014Q2

REPORT INFORMATION
  Report Type: Spontaneous
  Country: PL (occurrence: None)
  Receive Date: 20131224
  Receipt Date: 20140404
  Transmission Date: 20141212
  Serious: Yes (Hospitalization)
  Sender: FDA-Public Use
  Company Number: 2013-004023

PATIENT
  Age: 77 Year
  Sex: Female
  Weight: 59.5 kg

DRUGS (4)
  1. ACTONEL [Suspect]
     Indication: OSTEOPOROSIS POSTMENOPAUSAL
     Route: 048
     Dates: start: 20130723, end: 20131015
  2. TERIPARATIDE [Suspect]
     Indication: OSTEOPOROSIS POSTMENOPAUSAL
     Route: 058
     Dates: start: 20130722, end: 20131020
  3. CALCIUM (CALCIUM) [Concomitant]
  4. VITAMIN D (COLECALCIFEROL) [Concomitant]

REACTIONS (15)
  - Renal failure acute [None]
  - Visual impairment [None]
  - Face oedema [None]
  - Generalised oedema [None]
  - Nephrotic syndrome [None]
  - Cardiac failure [None]
  - Hypertension [None]
  - Hypertension [None]
  - Anaemia [None]
  - Renal failure acute [None]
  - Bacteriuria [None]
  - Left ventricular hypertrophy [None]
  - Renal cyst [None]
  - Hyperlipidaemia [None]
  - Hepatic steatosis [None]
